FAERS Safety Report 19722298 (Version 2)
Quarter: 2021Q3

REPORT INFORMATION
  Report Type: Report from Study
  Country: None (occurrence: US)
  Receive Date: 20210819
  Receipt Date: 20210827
  Transmission Date: 20211014
  Serious: No
  Sender: FDA-Public Use
  Company Number: US-ABBVIE-21K-163-4015330-00

PATIENT
  Age: 40 Year
  Sex: Female
  Weight: 45.4 kg

DRUGS (4)
  1. ORIAHNN [Suspect]
     Active Substance: ELAGOLIX SODIUM\ESTRADIOL\NORETHINDRONE
     Indication: HEAVY MENSTRUAL BLEEDING
     Dosage: 1 CAPSULE
     Route: 048
     Dates: start: 202104
  2. ORIAHNN [Suspect]
     Active Substance: ELAGOLIX SODIUM\ESTRADIOL\NORETHINDRONE
     Indication: HEAVY MENSTRUAL BLEEDING
     Dosage: 1 CAPSULE
     Route: 048
     Dates: start: 202104
  3. COVID?19 VACCINE [Concomitant]
     Dosage: PFIZER
     Route: 030
     Dates: start: 2021, end: 2021
  4. COVID?19 VACCINE [Concomitant]
     Indication: COVID-19 IMMUNISATION
     Dosage: PFIZER
     Route: 030
     Dates: start: 2021, end: 2021

REACTIONS (3)
  - Dysmenorrhoea [Not Recovered/Not Resolved]
  - Heavy menstrual bleeding [Recovering/Resolving]
  - Alopecia [Recovering/Resolving]

NARRATIVE: CASE EVENT DATE: 202104
